FAERS Safety Report 6974456-4 (Version None)
Quarter: 2010Q3

REPORT INFORMATION
  Report Type: 
  Country: None (occurrence: None)
  Receive Date: 20100909
  Receipt Date: 20080918
  Transmission Date: 20110219
  Serious: No
  Sender: FDA-Public Use
  Company Number: US-WYE-H06032408

PATIENT
  Sex: Female

DRUGS (1)
  1. PROTONIX [Suspect]
     Dosage: UNSPECIFIED
     Route: 065

REACTIONS (4)
  - DYSPNOEA [None]
  - FEELING HOT [None]
  - NAUSEA [None]
  - PRURITUS [None]
